FAERS Safety Report 17204342 (Version 1)
Quarter: 2019Q4

REPORT INFORMATION
  Report Type: Report from Study
  Country: US (occurrence: US)
  Receive Date: 20191226
  Receipt Date: 20191226
  Transmission Date: 20200122
  Serious: Yes (Hospitalization, Other)
  Sender: FDA-Public Use
  Company Number: US-BAYER-2019-219419

PATIENT
  Age: 72 Year
  Sex: Male

DRUGS (2)
  1. ADEMPAS [Suspect]
     Active Substance: RIOCIGUAT
     Indication: PULMONARY ARTERIAL HYPERTENSION
     Dosage: 1.5 MG, TID
     Route: 048
     Dates: start: 20190822
  2. ADEMPAS [Suspect]
     Active Substance: RIOCIGUAT
     Indication: ESSENTIAL HYPERTENSION
     Dosage: 1.5 MG
     Dates: start: 20190922

REACTIONS (6)
  - Asthenia [Unknown]
  - Contusion [Not Recovered/Not Resolved]
  - Pancreatic neoplasm [Not Recovered/Not Resolved]
  - Abdominal pain upper [Unknown]
  - Fatigue [Unknown]
  - Malaise [None]

NARRATIVE: CASE EVENT DATE: 2019
